FAERS Safety Report 7527295-X (Version None)
Quarter: 2011Q2

REPORT INFORMATION
  Report Type: 
  Country: None (occurrence: None)
  Receive Date: 20110603
  Receipt Date: 20110603
  Transmission Date: 20111010
  Serious: No
  Sender: FDA-Public Use
  Company Number: None

PATIENT
  Sex: Female
  Weight: 87.9978 kg

DRUGS (1)
  1. METFORMIN HCL [Suspect]
     Indication: DIABETES MELLITUS
     Dosage: 4 TABS 2 TAB TWICE A DAY PO
     Route: 048
     Dates: start: 20110507, end: 20110602

REACTIONS (3)
  - DRUG INEFFECTIVE [None]
  - MEDICATION RESIDUE [None]
  - PRODUCT QUALITY ISSUE [None]
